FAERS Safety Report 18000535 (Version 4)
Quarter: 2020Q4

REPORT INFORMATION
  Report Type: Spontaneous
  Country: BR (occurrence: BR)
  Receive Date: 20200709
  Receipt Date: 20201116
  Transmission Date: 20210113
  Serious: Yes (Hospitalization, Other)
  Sender: FDA-Public Use
  Company Number: BR-GLAXOSMITHKLINE-BR2019AMR197941

PATIENT
  Sex: Female

DRUGS (1)
  1. BENLYSTA [Suspect]
     Active Substance: BELIMUMAB
     Indication: SYSTEMIC LUPUS ERYTHEMATOSUS
     Dosage: UNK
     Dates: start: 20190415

REACTIONS (18)
  - Dyspnoea [Unknown]
  - Genital lesion [Not Recovered/Not Resolved]
  - Myocardial infarction [Unknown]
  - Product dose omission issue [Unknown]
  - Tooth infection [Unknown]
  - Pyrexia [Unknown]
  - Cough [Unknown]
  - Mental disorder [Unknown]
  - Mouth injury [Unknown]
  - Hospitalisation [Unknown]
  - Systemic lupus erythematosus [Unknown]
  - Decreased immune responsiveness [Unknown]
  - Seizure [Unknown]
  - Tongue injury [Unknown]
  - Malaise [Unknown]
  - Feeding disorder [Unknown]
  - Pericardial effusion [Unknown]
  - Oral disorder [Unknown]
